FAERS Safety Report 5429092-8 (Version None)
Quarter: 2007Q3

REPORT INFORMATION
  Report Type: 
  Country: None (occurrence: None)
  Receive Date: 20070824
  Receipt Date: 20070730
  Transmission Date: 20080115
  Serious: Yes (Hospitalization)
  Sender: FDA-Public Use
  Company Number: 6036357

PATIENT
  Age: 54 Year
  Sex: Female

DRUGS (2)
  1. TICLOPIDINE HCL [Suspect]
     Indication: DRUG USE FOR UNKNOWN INDICATION
     Dosage: 500 MG (250 MG, 2 IN 1 D)
  2. VERAPAMIL [Concomitant]

REACTIONS (15)
  - AGRANULOCYTOSIS [None]
  - BACTERIAL INFECTION [None]
  - BLOOD CULTURE POSITIVE [None]
  - CULTURE POSITIVE [None]
  - DECREASED APPETITE [None]
  - DYSPHAGIA [None]
  - GINGIVITIS ULCERATIVE [None]
  - HYPOGAMMAGLOBULINAEMIA [None]
  - IRON DEFICIENCY ANAEMIA [None]
  - LYMPHOPENIA [None]
  - MULTIPLE MYELOMA [None]
  - NEUTROPENIA [None]
  - PLATELET COUNT DECREASED [None]
  - STAPHYLOCOCCAL INFECTION [None]
  - TOOTHACHE [None]
